FAERS Safety Report 22281726 (Version 3)
Quarter: 2023Q2

REPORT INFORMATION
  Report Type: Report from Study
  Country: PL (occurrence: PL)
  Receive Date: 20230504
  Receipt Date: 20230529
  Transmission Date: 20230721
  Serious: Yes (Other)
  Sender: FDA-Public Use
  Company Number: PL-PURDUE-GBR-2018-0059604

PATIENT

DRUGS (3)
  1. CELECOXIB [Interacting]
     Active Substance: CELECOXIB
     Dosage: 400 MG, QD
  2. TRAMADOL HYDROCHLORIDE [Interacting]
     Active Substance: TRAMADOL HYDROCHLORIDE
     Indication: Cancer pain
     Dosage: 200 MG, QD
  3. METOCLOPRAMIDE HYDROCHLORIDE [Interacting]
     Active Substance: METOCLOPRAMIDE HYDROCHLORIDE
     Indication: Product used for unknown indication
     Dosage: 30 MG, QD

REACTIONS (2)
  - Serotonin syndrome [Unknown]
  - Drug interaction [Unknown]
